FAERS Safety Report 19363163 (Version 1)
Quarter: 2021Q2

REPORT INFORMATION
  Report Type: Spontaneous
  Country: PL (occurrence: PL)
  Receive Date: 20210603
  Receipt Date: 20210603
  Transmission Date: 20210717
  Serious: Yes (Other)
  Sender: FDA-Public Use
  Company Number: PL-SA-2021SA179984

PATIENT
  Age: 79 Year
  Sex: Male
  Weight: 100 kg

DRUGS (1)
  1. OMNIC [Suspect]
     Active Substance: TAMSULOSIN HYDROCHLORIDE
     Indication: PROSTATE CANCER
     Dosage: 0.4 MG, ONCE DAILY
     Route: 065
     Dates: start: 2008

REACTIONS (3)
  - Vision blurred [Recovering/Resolving]
  - Macular degeneration [Recovering/Resolving]
  - Product use in unapproved indication [Unknown]
